FAERS Safety Report 11867100 (Version 1)
Quarter: 2015Q4

REPORT INFORMATION
  Report Type: Spontaneous
  Country: US (occurrence: US)
  Receive Date: 20151224
  Receipt Date: 20151224
  Transmission Date: 20160305
  Serious: Yes (Other)
  Sender: FDA-Public Use
  Company Number: US-AMGEN-USASP2015136404

PATIENT
  Sex: Female

DRUGS (1)
  1. ENBREL [Suspect]
     Active Substance: ETANERCEPT
     Indication: ANKYLOSING SPONDYLITIS
     Dosage: UNK UNK, UNK
     Route: 065

REACTIONS (6)
  - Toothache [Unknown]
  - Root canal infection [Unknown]
  - Condition aggravated [Unknown]
  - Kidney infection [Unknown]
  - Endodontic procedure [Unknown]
  - Eczema [Unknown]

NARRATIVE: CASE EVENT DATE: 201512
